FAERS Safety Report 23821889 (Version 1)
Quarter: 2024Q2

REPORT INFORMATION
  Report Type: Spontaneous
  Country: FR (occurrence: FR)
  Receive Date: 20240506
  Receipt Date: 20240506
  Transmission Date: 20240716
  Serious: Yes (Hospitalization)
  Sender: FDA-Public Use
  Company Number: None

PATIENT
  Age: 39 Year
  Sex: Male
  Weight: 91.7 kg

DRUGS (3)
  1. ETOPOSIDE [Suspect]
     Active Substance: ETOPOSIDE
     Indication: T-cell type acute leukaemia
     Dosage: TIME INTERVAL: CYCLICAL: ETOPOSIDE TEVA
     Route: 042
     Dates: start: 20240301, end: 20240302
  2. ATRIANCE [Suspect]
     Active Substance: NELARABINE
     Indication: T-cell type acute leukaemia
     Dosage: TIME INTERVAL: CYCLICAL
     Route: 042
     Dates: start: 20240301, end: 20240303
  3. CYCLOPHOSPHAMIDE [Suspect]
     Active Substance: CYCLOPHOSPHAMIDE
     Indication: T-cell type acute leukaemia
     Dosage: TIME INTERVAL: CYCLICAL
     Route: 042
     Dates: start: 20240301, end: 20240305

REACTIONS (2)
  - Tumour lysis syndrome [Recovered/Resolved]
  - Acute polyneuropathy [Recovered/Resolved]

NARRATIVE: CASE EVENT DATE: 20240302
